FAERS Safety Report 11087976 (Version 2)
Quarter: 2015Q3

REPORT INFORMATION
  Report Type: Spontaneous
  Country: US (occurrence: US)
  Receive Date: 20150430
  Receipt Date: 20150709
  Transmission Date: 20151125
  Serious: Yes (Other)
  Sender: FDA-Public Use
  Company Number: CIO15025786

PATIENT
  Age: 48 Year
  Sex: Female

DRUGS (5)
  1. TIZANIDINE. [Concomitant]
     Active Substance: TIZANIDINE
     Indication: HYPOTONIA
     Dosage: 8 MG, EVENING
  2. LYRICA [Concomitant]
     Active Substance: PREGABALIN
     Indication: RADICULOPATHY
     Dosage: 150 MG, 2 /DAY
  3. MULTI-VIT [Concomitant]
     Active Substance: VITAMINS
     Indication: ROUTINE HEALTH MAINTENANCE
     Dosage: 1 UNK, DAILY
  4. ANTIHYPERTENSIVES [Concomitant]
     Active Substance: UNSPECIFIED INGREDIENT
     Indication: BLOOD PRESSURE MANAGEMENT
     Dosage: 1 UNK, DAILY
  5. CREST 3D WHITE VIVID RADIANT MINT [Suspect]
     Active Substance: SODIUM FLUORIDE
     Dosage: 1 SQUIRT, 2 /DAY
     Route: 002
     Dates: end: 201504

REACTIONS (5)
  - Jaw disorder [Recovered/Resolved]
  - Gingival injury [Recovered/Resolved]
  - Gingivitis [Not Recovered/Not Resolved]
  - Foreign body [Recovered/Resolved]
  - Gingival bleeding [Recovered/Resolved]

NARRATIVE: CASE EVENT DATE: 201501
